FAERS Safety Report 21636090 (Version 5)
Quarter: 2023Q1

REPORT INFORMATION
  Report Type: Report from Study
  Country: JP (occurrence: JP)
  Receive Date: 20221123
  Receipt Date: 20230306
  Transmission Date: 20230417
  Serious: Yes (Hospitalization, Other)
  Sender: FDA-Public Use
  Company Number: JP-ONO-2022JP031286

PATIENT
  Age: 71 Year
  Sex: Male
  Weight: 60.3 kg

DRUGS (15)
  1. ETELCALCETIDE [Suspect]
     Active Substance: ETELCALCETIDE
     Indication: Hyperparathyroidism secondary
     Dosage: 5 MILLIGRAM
     Route: 010
     Dates: start: 20201202, end: 20210816
  2. ETELCALCETIDE [Suspect]
     Active Substance: ETELCALCETIDE
     Dosage: 5 MILLIGRAM
     Route: 065
     Dates: start: 20210818
  3. FOSRENOL [Concomitant]
     Active Substance: LANTHANUM CARBONATE
     Dosage: 1500 MILLIGRAM, QD
     Route: 048
  4. CALCITRIOL [Concomitant]
     Active Substance: CALCITRIOL
     Dosage: 0.5 MICROGRAM, Q56H
     Route: 065
     Dates: start: 20190712, end: 20190911
  5. CALCITRIOL [Concomitant]
     Active Substance: CALCITRIOL
     Dosage: 1 MICROGRAM, Q56H
     Dates: start: 20190913, end: 20191230
  6. CALCITRIOL [Concomitant]
     Active Substance: CALCITRIOL
     Dosage: 0.5 MICROGRAM, Q56H
     Dates: start: 20200101, end: 20200226
  7. CALCITRIOL [Concomitant]
     Active Substance: CALCITRIOL
     Dosage: 1 MICROGRAM, Q56H
     Dates: start: 20200228, end: 20200518
  8. CALCITRIOL [Concomitant]
     Active Substance: CALCITRIOL
     Dosage: 0.5 MICROGRAM, Q56H
     Dates: start: 20200520, end: 20200720
  9. CALCITRIOL [Concomitant]
     Active Substance: CALCITRIOL
     Dosage: 1.0 MICROGRAM, Q56H
     Dates: start: 20200722, end: 20200921
  10. CALCITRIOL [Concomitant]
     Active Substance: CALCITRIOL
     Dosage: 0.5 MICROGRAM, Q56H
     Dates: start: 20200923, end: 20201019
  11. CALCITRIOL [Concomitant]
     Active Substance: CALCITRIOL
     Dosage: 0.5 MICROGRAM, Q56H
     Dates: start: 20201216, end: 20201223
  12. CALCITRIOL [Concomitant]
     Active Substance: CALCITRIOL
     Dosage: 1.0 MICROGRAM, Q56H
     Dates: start: 20201225, end: 20210110
  13. CALCITRIOL [Concomitant]
     Active Substance: CALCITRIOL
     Dosage: 0.5 MICROGRAM, Q56H
     Dates: start: 20210122, end: 20211213
  14. CALCITRIOL [Concomitant]
     Active Substance: CALCITRIOL
     Dosage: 0.5 MICROGRAM, Q56H
     Dates: start: 20220112, end: 20220516
  15. CALCITRIOL [Concomitant]
     Active Substance: CALCITRIOL
     Dosage: 1.0 MICROGRAM, Q56H
     Dates: start: 20220518

REACTIONS (2)
  - Cerebral infarction [Not Recovered/Not Resolved]
  - Ankle fracture [Not Recovered/Not Resolved]

NARRATIVE: CASE EVENT DATE: 20221021
